FAERS Safety Report 9065283 (Version 1)
Quarter: 2013Q1

REPORT INFORMATION
  Report Type: Report from Study
  Country: US (occurrence: US)
  Receive Date: 20130131
  Receipt Date: 20130131
  Transmission Date: 20140127
  Serious: No
  Sender: FDA-Public Use
  Company Number: US-ABBOTT-12P-163-1013656-00

PATIENT
  Age: 55 Year
  Sex: Female

DRUGS (9)
  1. HUMIRA [Suspect]
     Indication: ANKYLOSING SPONDYLITIS
     Dates: start: 20121017
  2. COREG [Concomitant]
     Indication: BLOOD PRESSURE
  3. HYZAAR [Concomitant]
     Indication: BLOOD PRESSURE
  4. BABY ASPIRIN [Concomitant]
     Indication: CARDIAC DISORDER
  5. FISH OIL [Concomitant]
     Indication: SUPPLEMENTATION THERAPY
  6. CALCIUM [Concomitant]
     Indication: MINERAL SUPPLEMENTATION
  7. CENTRUM SILVER ADULTS 50+ [Concomitant]
     Indication: VITAMIN SUPPLEMENTATION
  8. VITAMIN D2 [Concomitant]
     Indication: VITAMIN D DECREASED
     Dosage: 1.25MG/50,000 IU; STARTED SAME TIME AS HUMIRA
  9. ABREVA [Concomitant]
     Indication: ORAL HERPES
     Route: 061

REACTIONS (3)
  - Skin fissures [Recovered/Resolved]
  - Injection site haemorrhage [Recovered/Resolved]
  - Injection site pain [Recovered/Resolved]
